FAERS Safety Report 17861436 (Version 2)
Quarter: 2020Q2

REPORT INFORMATION
  Report Type: Report from Study
  Country: CA (occurrence: CA)
  Receive Date: 20200604
  Receipt Date: 20200605
  Transmission Date: 20200714
  Serious: Yes (Hospitalization, Other)
  Sender: FDA-Public Use
  Company Number: CA-GLAXOSMITHKLINE-CA2020AMR091486

PATIENT
  Sex: Female

DRUGS (1)
  1. MEPOLIZUMAB [Suspect]
     Active Substance: MEPOLIZUMAB
     Indication: ASTHMA
     Dosage: 100 MG, Z,MONTHLY
     Route: 042
     Dates: start: 20180619

REACTIONS (8)
  - Pneumonia [Unknown]
  - Urinary incontinence [Unknown]
  - Chromaturia [Unknown]
  - Confusional state [Unknown]
  - Product dose omission [Unknown]
  - Quarantine [Unknown]
  - Pyrexia [Unknown]
  - Diarrhoea [Unknown]
